FAERS Safety Report 5828685-3 (Version None)
Quarter: 2008Q3

REPORT INFORMATION
  Report Type: 
  Country: None (occurrence: None)
  Receive Date: 20080731
  Receipt Date: 20080724
  Transmission Date: 20090109
  Serious: Yes (Other)
  Sender: FDA-Public Use
  Company Number: JP-WATSON-2008-04526

PATIENT
  Age: 85 Year
  Sex: Female

DRUGS (1)
  1. ISOSORBIDE (WATSON LABORATORIES) [Suspect]
     Indication: SUBDURAL HAEMATOMA
     Dosage: 70 ML/DAY
     Route: 065
     Dates: start: 20080101

REACTIONS (1)
  - ERYTHEMA MULTIFORME [None]
